FAERS Safety Report 23354622 (Version 1)
Quarter: 2024Q1

REPORT INFORMATION
  Report Type: Spontaneous
  Country: DE (occurrence: DE)
  Receive Date: 20240101
  Receipt Date: 20240101
  Transmission Date: 20240410
  Serious: Yes (Life-Threatening, Other)
  Sender: FDA-Public Use
  Company Number: DE-AMGEN-DEUSP2023230635

PATIENT
  Age: 29 Year
  Sex: Female

DRUGS (1)
  1. ROMIPLOSTIM [Suspect]
     Active Substance: ROMIPLOSTIM
     Indication: Immune thrombocytopenia
     Dosage: UNK
     Route: 065
     Dates: start: 202012

REACTIONS (9)
  - Nephrotic syndrome [Unknown]
  - Thrombotic thrombocytopenic purpura [Unknown]
  - Acute myocardial infarction [Unknown]
  - Systemic lupus erythematosus [Unknown]
  - Cerebral infarction [Unknown]
  - Thrombotic microangiopathy [Unknown]
  - Immune thrombocytopenia [Unknown]
  - Lupus nephritis [Unknown]
  - Respiratory tract infection [Unknown]

NARRATIVE: CASE EVENT DATE: 20210401
